FAERS Safety Report 5768740-X (Version None)
Quarter: 2008Q2

REPORT INFORMATION
  Report Type: 
  Country: None (occurrence: None)
  Receive Date: 20080612
  Receipt Date: 20080107
  Transmission Date: 20081010
  Serious: No
  Sender: FDA-Public Use
  Company Number: US-BOEHRINGER INGELHEIM GMBH, GERMANY-2007-BP-22227BP

PATIENT
  Sex: Male
  Weight: 109 kg

DRUGS (27)
  1. MIRAPEX [Suspect]
     Indication: PARKINSON'S DISEASE
     Dates: start: 20020514
  2. CARBIDOPA AND LEVODOPA [Concomitant]
     Indication: PARKINSON'S DISEASE
  3. REQUIP [Concomitant]
     Indication: PARKINSON'S DISEASE
  4. GABAPENTIN [Concomitant]
     Indication: NEUROPATHY PERIPHERAL
  5. CYMBALTA [Concomitant]
     Indication: NEUROPATHY PERIPHERAL
  6. LORAZEPAM [Concomitant]
     Indication: MUSCLE DISORDER
  7. AMBIEN [Concomitant]
     Indication: SLEEP DISORDER
  8. VITAMIN B-12 [Concomitant]
  9. HYDROCHLOROTHIAZIDE [Concomitant]
  10. SELEGILINE HCL [Concomitant]
  11. AMANTADINE HCL [Concomitant]
  12. BENCARLASIX [Concomitant]
  13. DOXYCYCLINE [Concomitant]
  14. ARTANE [Concomitant]
  15. BENICAR/HYDROCHLOROTHIAZIDE [Concomitant]
  16. ASPIRIN [Concomitant]
  17. PROVIGIL [Concomitant]
  18. BACITRACIN [Concomitant]
  19. METROGEL [Concomitant]
  20. LASIX [Concomitant]
  21. MIDODRINE [Concomitant]
  22. TOBRADEX [Concomitant]
  23. QUIXIN [Concomitant]
  24. ERYTHROMYCIN [Concomitant]
  25. OFLOXACIN [Concomitant]
  26. HYDROCODONE BITARTRATE AND ACETAMINOPHEN [Concomitant]
  27. AMOXICILLIN [Concomitant]

REACTIONS (6)
  - DEPRESSION [None]
  - EMOTIONAL DISTRESS [None]
  - INJURY [None]
  - OBSESSIVE-COMPULSIVE DISORDER [None]
  - PATHOLOGICAL GAMBLING [None]
  - WEIGHT INCREASED [None]
